FAERS Safety Report 8538461-9 (Version None)
Quarter: 2012Q3

REPORT INFORMATION
  Report Type: 
  Country: None (occurrence: None)
  Receive Date: 20120726
  Receipt Date: 20120719
  Transmission Date: 20120928
  Serious: Yes (Life-Threatening)
  Sender: FDA-Public Use
  Company Number: US-CELGENEUS-163-21880-12072574

PATIENT
  Sex: Male

DRUGS (1)
  1. REVLIMID [Suspect]
     Indication: MULTIPLE MYELOMA
     Dosage: 5 MILLIGRAM
     Route: 048
     Dates: start: 20120627, end: 20120712

REACTIONS (6)
  - BLOOD PRESSURE INCREASED [None]
  - FATIGUE [None]
  - DYSPNOEA [None]
  - MUSCLE SPASMS [None]
  - HEART RATE IRREGULAR [None]
  - MUSCLE TWITCHING [None]
